FAERS Safety Report 5714117-2 (Version None)
Quarter: 2008Q2

REPORT INFORMATION
  Report Type: 
  Country: None (occurrence: None)
  Receive Date: 20080422
  Receipt Date: 20080422
  Transmission Date: 20081010
  Serious: Yes (Other)
  Sender: FDA-Public Use
  Company Number: None

PATIENT
  Age: 55 Year
  Sex: Male
  Weight: 75.2971 kg

DRUGS (1)
  1. PROVIGIL [Suspect]
     Dosage: 1 TABLET DAILY PO
     Route: 048

REACTIONS (3)
  - CONDITION AGGRAVATED [None]
  - DYSLEXIA [None]
  - SOMNOLENCE [None]
